FAERS Safety Report 16267166 (Version 2)
Quarter: 2019Q2

REPORT INFORMATION
  Report Type: Spontaneous
  Country: KR (occurrence: KR)
  Receive Date: 20190502
  Receipt Date: 20190508
  Transmission Date: 20190711
  Serious: Yes (Other)
  Sender: FDA-Public Use
  Company Number: KR-009507513-1904KOR012179

PATIENT
  Age: 67 Year
  Sex: Male

DRUGS (4)
  1. KEYTRUDA [Suspect]
     Active Substance: PEMBROLIZUMAB
     Indication: CHOLANGIOCARCINOMA
     Dosage: TIMES: 2, DAYS: 1
     Dates: start: 20190415, end: 20190415
  2. SODIUM CHLORIDE. [Concomitant]
     Active Substance: SODIUM CHLORIDE
     Dosage: 50 MILLILITER; TIMES: 1; DAYS: 1
     Dates: start: 20190415, end: 20190415
  3. PENIRAMIN [Concomitant]
     Dosage: TIMES: 1, DAYS: 1
     Dates: start: 20190415, end: 20190415
  4. SODIUM CHLORIDE. [Concomitant]
     Active Substance: SODIUM CHLORIDE
     Dosage: TIMES: 1; DAYS: 1
     Dates: start: 20190415, end: 20190415

REACTIONS (2)
  - Product use in unapproved indication [Unknown]
  - Transfusion [Unknown]

NARRATIVE: CASE EVENT DATE: 20190415
